FAERS Safety Report 4849377-3 (Version None)
Quarter: 2005Q4

REPORT INFORMATION
  Report Type: 
  Country: None (occurrence: None)
  Receive Date: 20051207
  Receipt Date: 20051117
  Transmission Date: 20060501
  Serious: Yes (Hospitalization)
  Sender: FDA-Public Use
  Company Number: WAES 0511USA00732

PATIENT
  Age: 74 Year
  Sex: Male

DRUGS (7)
  1. ZOCOR [Suspect]
     Dosage: PO
     Route: 048
  2. AMLODIPINE BESYLATE [Concomitant]
  3. EBRANTIL [Concomitant]
  4. JUVELA NICOTINATE [Concomitant]
  5. SELBEX [Concomitant]
  6. TAGAMET [Concomitant]
  7. AMBROXOL HYDROCHLORIDE [Concomitant]

REACTIONS (1)
  - HERPES ZOSTER [None]
